FAERS Safety Report 18558483 (Version 6)
Quarter: 2021Q2

REPORT INFORMATION
  Report Type: Report from Study
  Country: DE (occurrence: DE)
  Receive Date: 20201130
  Receipt Date: 20210624
  Transmission Date: 20210717
  Serious: Yes (Other)
  Sender: FDA-Public Use
  Company Number: DE-KYOWAKIRIN-2020BKK020294

PATIENT

DRUGS (6)
  1. BUROSUMAB [Suspect]
     Active Substance: BUROSUMAB
     Indication: HEREDITARY HYPOPHOSPHATAEMIC RICKETS
     Dosage: 20 MG
     Route: 065
     Dates: start: 20201112, end: 20201119
  2. BUROSUMAB [Suspect]
     Active Substance: BUROSUMAB
     Dosage: 20 MG
     Route: 058
     Dates: start: 20210527, end: 20210527
  3. BUROSUMAB [Suspect]
     Active Substance: BUROSUMAB
     Dosage: 20 MG
     Route: 065
     Dates: start: 20210108, end: 2021
  4. BUROSUMAB [Suspect]
     Active Substance: BUROSUMAB
     Dosage: 20 MG
     Route: 065
     Dates: start: 20201224, end: 20201224
  5. BUROSUMAB [Suspect]
     Active Substance: BUROSUMAB
     Dosage: 25 MG
     Route: 058
     Dates: start: 20210610
  6. BUROSUMAB [Suspect]
     Active Substance: BUROSUMAB
     Dosage: UNK
     Route: 065
     Dates: start: 20171123

REACTIONS (1)
  - Ocular neoplasm [Unknown]

NARRATIVE: CASE EVENT DATE: 20201120
